FAERS Safety Report 23920524 (Version 3)
Quarter: 2024Q2

REPORT INFORMATION
  Report Type: Spontaneous
  Country: US (occurrence: US)
  Receive Date: 20240530
  Receipt Date: 20240621
  Transmission Date: 20240715
  Serious: Yes (Hospitalization)
  Sender: FDA-Public Use
  Company Number: US-BAYER-2024A075547

PATIENT
  Sex: Male

DRUGS (31)
  1. ASPIRIN [Suspect]
     Active Substance: ASPIRIN
     Indication: Thrombosis prophylaxis
     Dosage: UNK UNK, QD
  2. ASPIRIN [Suspect]
     Active Substance: ASPIRIN
     Indication: Thrombosis prophylaxis
     Dosage: 81 MG
  3. VYNDAMAX [Concomitant]
     Active Substance: TAFAMIDIS
     Indication: Blood disorder
     Dosage: 6 MG, QD
  4. ELIQUIS [Concomitant]
     Active Substance: APIXABAN
     Indication: Thrombosis prophylaxis
     Dosage: 5 MG, QD
  5. ATENOLOL [Concomitant]
     Active Substance: ATENOLOL
     Dosage: 50 MG, QD
  6. ATENOLOL [Concomitant]
     Active Substance: ATENOLOL
     Dosage: 100 MG, QD
  7. MENTHOL [Concomitant]
     Active Substance: MENTHOL
     Indication: Pain in extremity
     Dosage: UNK UNK, QD
  8. MENTHOL [Concomitant]
     Active Substance: MENTHOL
     Indication: Back pain
     Dosage: 10.5%
  9. BUMETANIDE [Concomitant]
     Active Substance: BUMETANIDE
     Indication: Fluid retention
     Dosage: 1 MG, BID
  10. COLCHICINE [Concomitant]
     Active Substance: COLCHICINE
     Dosage: 2 DF (0.6MG)
  11. COLCHICINE [Concomitant]
     Active Substance: COLCHICINE
     Dosage: 0.6 MG
  12. VALSARTAN [Concomitant]
     Active Substance: VALSARTAN
     Dosage: 103 MG, QD
  13. VALSARTAN [Concomitant]
     Active Substance: VALSARTAN
     Dosage: 320 MG, QD
  14. VALSARTAN [Concomitant]
     Active Substance: VALSARTAN
     Dosage: 97-103MG
  15. FLUTICASONE [Concomitant]
     Active Substance: FLUTICASONE
     Dosage: 50MCG/AC
  16. LINACLOTIDE [Concomitant]
     Active Substance: LINACLOTIDE
     Indication: Gastrointestinal motility disorder
     Dosage: 145 MG, QD
  17. LINACLOTIDE [Concomitant]
     Active Substance: LINACLOTIDE
     Indication: Gastrointestinal motility disorder
     Dosage: 290MCG
  18. EMPAGLIFLOZIN [Concomitant]
     Active Substance: EMPAGLIFLOZIN
     Dosage: 25 MG, QD
  19. MINOXIDIL [Concomitant]
     Active Substance: MINOXIDIL
     Indication: Blood pressure measurement
     Dosage: 10 MG, QD
  20. DEXTROMETHORPHAN HYDROBROMIDE [Concomitant]
     Active Substance: DEXTROMETHORPHAN HYDROBROMIDE
  21. POTASSIUM [Concomitant]
     Active Substance: POTASSIUM
     Indication: Blood potassium
     Dosage: 1 DF, QD
  22. POTASSIUM [Concomitant]
     Active Substance: POTASSIUM
     Indication: Blood potassium
     Dosage: 20MEQ
  23. PRAVASTATIN [Concomitant]
     Active Substance: PRAVASTATIN
     Dosage: 40 MG, QD
  24. SPIRONOLACTONE [Concomitant]
     Active Substance: SPIRONOLACTONE
     Dosage: 25 MG, QD
  25. SPIRONOLACTONE [Concomitant]
     Active Substance: SPIRONOLACTONE
     Dosage: 100MG
  26. TAMSULOSIN [Concomitant]
     Active Substance: TAMSULOSIN
     Indication: Prostatomegaly
     Dosage: 0.4 MG, QD
  27. TRELEGY ELLIPTA [Concomitant]
     Active Substance: FLUTICASONE FUROATE\UMECLIDINIUM BROMIDE\VILANTEROL TRIFENATATE
     Dosage: 20 MG, QD
  28. TRELEGY ELLIPTA [Concomitant]
     Active Substance: FLUTICASONE FUROATE\UMECLIDINIUM BROMIDE\VILANTEROL TRIFENATATE
     Dosage: 200-62.5
  29. PANTOPRAZOLE [Concomitant]
     Active Substance: PANTOPRAZOLE
     Indication: Dyspepsia
     Dosage: 40 MG, QD
  30. IRON [Concomitant]
     Active Substance: IRON
     Dosage: 27 MG, QD
  31. VITAMIN A [Concomitant]
     Active Substance: VITAMIN A
     Dosage: UNK 6 MONTHS

REACTIONS (3)
  - Back pain [Recovered/Resolved]
  - Somnolence [Not Recovered/Not Resolved]
  - Fatigue [None]

NARRATIVE: CASE EVENT DATE: 20200101
